FAERS Safety Report 9485357 (Version 2)
Quarter: 2013Q3

REPORT INFORMATION
  Report Type: Spontaneous
  Country: FR (occurrence: FR)
  Receive Date: 20130828
  Receipt Date: 20130828
  Transmission Date: 20140515
  Serious: Yes (Other)
  Sender: FDA-Public Use
  Company Number: FR-ROCHE-1006050

PATIENT
  Age: 65 Year
  Sex: Male

DRUGS (5)
  1. TOCILIZUMAB [Suspect]
     Indication: RHEUMATOID ARTHRITIS
     Dosage: DELAYED (ONE MONTH)
     Route: 065
  2. TOCILIZUMAB [Suspect]
     Dosage: HELD FOR 2 MONTHS
     Route: 065
  3. TOCILIZUMAB [Suspect]
     Dosage: REINTRODUCED
     Route: 065
  4. PREDNISONE [Concomitant]
     Dosage: 5 TO 2 MG/DAY
     Route: 065
  5. PREDNISONE [Concomitant]
     Route: 065

REACTIONS (2)
  - Ulcerative keratitis [Not Recovered/Not Resolved]
  - Eosinophilia [Unknown]
